FAERS Safety Report 9697283 (Version 1)
Quarter: 2013Q4

REPORT INFORMATION
  Report Type: Spontaneous
  Country: FR (occurrence: FR)
  Receive Date: 20131120
  Receipt Date: 20131120
  Transmission Date: 20140711
  Serious: Yes (Hospitalization)
  Sender: FDA-Public Use
  Company Number: FR-ASTRAZENECA-2013SE84010

PATIENT
  Age: 68 Year
  Sex: Male

DRUGS (15)
  1. INEXIUM [Suspect]
     Indication: GASTRIC ULCER
     Route: 048
     Dates: end: 20110609
  2. INEXIUM [Suspect]
     Indication: GASTRIC ULCER
     Route: 048
     Dates: start: 20110610, end: 20110611
  3. INEXIUM [Suspect]
     Indication: GASTRIC ULCER
     Route: 048
     Dates: start: 20110612, end: 20110616
  4. INEXIUM [Suspect]
     Indication: GASTRIC ULCER
     Route: 048
     Dates: start: 2012, end: 201307
  5. BRISTOPEN [Suspect]
     Indication: INFECTION
     Route: 042
     Dates: start: 20110530, end: 20110608
  6. EUPRESSYL [Concomitant]
  7. LOVENOX [Concomitant]
  8. LOXEN [Concomitant]
  9. DIFFU K [Concomitant]
  10. GENTAMICINE PANPHARMA [Concomitant]
     Dosage: ONCE/SINGLE ADMINISTRATION
     Dates: start: 20110601
  11. GENTAMICINE PANPHARMA [Concomitant]
     Dosage: ONCE/SINGLE ADMINISTRATION
     Dates: start: 20110602
  12. RIMIFON [Concomitant]
     Indication: TUBERCULOSIS OF GENITOURINARY SYSTEM
     Dates: start: 20110520
  13. RIFINAH [Concomitant]
     Indication: TUBERCULOSIS OF GENITOURINARY SYSTEM
     Dates: start: 20110520
  14. MYAMBUTOL [Concomitant]
     Indication: TUBERCULOSIS OF GENITOURINARY SYSTEM
     Dates: start: 20110520
  15. PYRILENE [Concomitant]
     Indication: TUBERCULOSIS OF GENITOURINARY SYSTEM
     Dates: start: 20110520

REACTIONS (3)
  - Tuberculosis of genitourinary system [Unknown]
  - Staphylococcus test positive [Unknown]
  - Neutropenia [Recovered/Resolved]
